FAERS Safety Report 23690981 (Version 1)
Quarter: 2024Q2

REPORT INFORMATION
  Report Type: Spontaneous
  Country: CA (occurrence: CA)
  Receive Date: 20240401
  Receipt Date: 20240401
  Transmission Date: 20240715
  Serious: Yes (Life-Threatening, Hospitalization, Other)
  Sender: FDA-Public Use
  Company Number: CA-TEVA-VS-3176542

PATIENT
  Age: 37 Year
  Sex: Female

DRUGS (23)
  1. PROPOFOL [Suspect]
     Active Substance: PROPOFOL
     Indication: Status epilepticus
     Dosage: DOSAGE FORM: NOT SPECIFIED
     Route: 065
  2. CLOBAZAM [Suspect]
     Active Substance: CLOBAZAM
     Indication: Status epilepticus
     Route: 065
  3. MIDAZOLAM HYDROCHLORIDE [Suspect]
     Active Substance: MIDAZOLAM HYDROCHLORIDE
     Indication: Status epilepticus
     Route: 065
  4. ACYCLOVIR [Concomitant]
     Active Substance: ACYCLOVIR
     Indication: Status epilepticus
     Dosage: DOSAGE FORM: NOT SPECIFIED
     Route: 065
  5. AZATHIOPRINE [Suspect]
     Active Substance: AZATHIOPRINE
     Indication: Immunosuppressant drug therapy
     Route: 065
  6. LACOSAMIDE [Suspect]
     Active Substance: LACOSAMIDE
     Indication: Status epilepticus
     Route: 065
  7. LAMOTRIGINE [Suspect]
     Active Substance: LAMOTRIGINE
     Indication: Status epilepticus
     Route: 065
  8. LEVETIRACETAM [Suspect]
     Active Substance: LEVETIRACETAM
     Indication: Status epilepticus
     Dosage: DOSAGE FORM: NOT SPECIFIED
     Route: 065
  9. LORAZEPAM [Suspect]
     Active Substance: LORAZEPAM
     Indication: Status epilepticus
     Dosage: DOSAGE FORM: NOT SPECIFIED
     Route: 065
  10. METHYLPREDNISOLONE [Suspect]
     Active Substance: METHYLPREDNISOLONE
     Indication: Status epilepticus
     Route: 065
  11. VANCOMYCIN HYDROCHLORIDE [Concomitant]
     Active Substance: VANCOMYCIN HYDROCHLORIDE
     Indication: Status epilepticus
     Route: 065
  12. RITUXIMAB [Suspect]
     Active Substance: RITUXIMAB
     Indication: Status epilepticus
     Route: 042
  13. RITUXIMAB [Suspect]
     Active Substance: RITUXIMAB
     Indication: Status epilepticus
     Route: 065
  14. PIPERACILLIN SODIUM\TAZOBACTAM SODIUM [Concomitant]
     Active Substance: PIPERACILLIN SODIUM\TAZOBACTAM SODIUM
     Indication: Status epilepticus
     Route: 065
  15. PHENYTOIN [Suspect]
     Active Substance: PHENYTOIN
     Indication: Status epilepticus
     Dosage: DOSAGE FORM: NOT SPECIFIED
     Route: 065
  16. VALPROATE SODIUM [Suspect]
     Active Substance: VALPROATE SODIUM
     Indication: Status epilepticus
     Route: 065
  17. PHENOBARBITAL SODIUM [Suspect]
     Active Substance: PHENOBARBITAL SODIUM
     Indication: Status epilepticus
     Route: 065
  18. PERAMPANEL [Suspect]
     Active Substance: PERAMPANEL
     Indication: Status epilepticus
     Route: 065
  19. KETAMINE HYDROCHLORIDE [Suspect]
     Active Substance: KETAMINE HYDROCHLORIDE
     Indication: Status epilepticus
     Route: 065
  20. HUMAN IMMUNOGLOBULIN G [Suspect]
     Active Substance: HUMAN IMMUNOGLOBULIN G
     Indication: Status epilepticus
     Route: 065
  21. HUMAN IMMUNOGLOBULIN G [Suspect]
     Active Substance: HUMAN IMMUNOGLOBULIN G
     Indication: Status epilepticus
     Route: 042
  22. ESLICARBAZEPINE ACETATE [Suspect]
     Active Substance: ESLICARBAZEPINE ACETATE
     Indication: Status epilepticus
     Route: 065
  23. CEFTRIAXONE SODIUM [Concomitant]
     Active Substance: CEFTRIAXONE SODIUM
     Indication: Status epilepticus
     Route: 065

REACTIONS (3)
  - Drug ineffective [Unknown]
  - Off label use [Unknown]
  - Drug ineffective for unapproved indication [Unknown]
